FAERS Safety Report 15615760 (Version 2)
Quarter: 2019Q1

REPORT INFORMATION
  Report Type: Spontaneous
  Country: GB (occurrence: GB)
  Receive Date: 20181114
  Receipt Date: 20190329
  Transmission Date: 20190417
  Serious: Yes (Death, Other)
  Sender: FDA-Public Use
  Company Number: GB-ACCORD-091957

PATIENT
  Age: 31 Year
  Sex: Female

DRUGS (18)
  1. AZATHIOPRINE. [Suspect]
     Active Substance: AZATHIOPRINE
     Indication: INFLAMMATORY BOWEL DISEASE
     Dosage: DATE AND TIME OF LAST ADMINISTRATION: AUG-2014
     Route: 048
     Dates: start: 201404
  2. CYCLIZINE [Concomitant]
     Active Substance: CYCLIZINE
     Dosage: AT 33 WEEKS
  3. RANITIDINE. [Concomitant]
     Active Substance: RANITIDINE
     Dosage: AT 33 WEEKS
  4. PREDNISOLONE. [Suspect]
     Active Substance: PREDNISOLONE
     Indication: INFLAMMATORY BOWEL DISEASE
     Dosage: 5-40MG,DATE AND TIME OF LAST ADMINISTRATION: 2018
     Route: 048
     Dates: start: 2008
  5. CICLOSPORIN [Suspect]
     Active Substance: CYCLOSPORINE
     Indication: INFLAMMATORY BOWEL DISEASE
     Dosage: DATE AND TIME OF LAST ADMINISTRATION: APR-2009
     Route: 048
     Dates: start: 200810
  6. PARACETAMOL [Concomitant]
     Active Substance: ACETAMINOPHEN
     Dosage: FROM EARLY PREGNANCY
  7. ESOMEPRAZOLE/ESOMEPRAZOLE MAGNESIUM/ESOMEPRAZOLE SODIUM [Concomitant]
     Dosage: AT 33 WEEKS
  8. MERCAPTOPURINE. [Suspect]
     Active Substance: MERCAPTOPURINE
     Indication: INFLAMMATORY BOWEL DISEASE
     Dosage: DATE AND TIME OF LAST ADMINISTRATION: APR-2014
     Route: 048
     Dates: start: 201306
  9. VEDOLIZUMAB [Suspect]
     Active Substance: VEDOLIZUMAB
     Indication: INFLAMMATORY BOWEL DISEASE
     Dosage: DATE OF LAST ADMINISTRATION: JUL-2018,STOPPED BY 32 WEEKS PREGNANT
     Route: 042
     Dates: start: 201604
  10. AMITRIPTYLINE [Concomitant]
     Active Substance: AMITRIPTYLINE
     Dosage: STOPPED BY 32 WEEKS PREGNANT
     Dates: end: 2018
  11. BETAMETHASONE. [Concomitant]
     Active Substance: BETAMETHASONE
     Dosage: AT 33 WEEKS PREGNANT
  12. PANTOPRAZOLE [Concomitant]
     Active Substance: PANTOPRAZOLE
     Dosage: FROM EARLY PREGNANCY
  13. METHOTREXATE. [Suspect]
     Active Substance: METHOTREXATE
     Indication: INFLAMMATORY BOWEL DISEASE
     Dosage: DATE AND TIME OF LAST ADMINISTRATION: OCT-2010
     Route: 048
     Dates: start: 200910
  14. VITAMINS NOS [Concomitant]
     Active Substance: VITAMINS
     Dosage: FROM EARLY PREGNANCY
  15. SERTRALINE [Concomitant]
     Active Substance: SERTRALINE HYDROCHLORIDE
     Dosage: FROM EARLY PREGNANCY
  16. INFLIXIMAB [Suspect]
     Active Substance: INFLIXIMAB
     Indication: INFLAMMATORY BOWEL DISEASE
     Dosage: DATE AND TIME OF LAST ADMINISTRATION: OCT-2007
     Route: 042
     Dates: start: 200703
  17. PROCHLORPERAZINE. [Concomitant]
     Active Substance: PROCHLORPERAZINE
     Dosage: FROM EARLY PREGNANCY
  18. ADALIMUMAB [Suspect]
     Active Substance: ADALIMUMAB
     Indication: INFLAMMATORY BOWEL DISEASE
     Dosage: DATE AND TIME OF LAST ADMINISTRATION: OCT-2009
     Route: 058
     Dates: start: 200904

REACTIONS (3)
  - Off label use [Unknown]
  - Rectal cancer metastatic [Fatal]
  - Maternal exposure during pregnancy [Unknown]

NARRATIVE: CASE EVENT DATE: 20180809
